FAERS Safety Report 9314689 (Version 2)
Quarter: 2013Q2

REPORT INFORMATION
  Report Type: Spontaneous
  Country: IT (occurrence: IT)
  Receive Date: 20130529
  Receipt Date: 20130603
  Transmission Date: 20140414
  Serious: Yes (Other)
  Sender: FDA-Public Use
  Company Number: IT-SANOFI-AVENTIS-2013SA051267

PATIENT
  Age: 79 Year
  Sex: Female

DRUGS (17)
  1. URBASON SOLUBILE [Suspect]
     Indication: CHRONIC OBSTRUCTIVE PULMONARY DISEASE
     Dosage: 20MG/ML DOSE:2 UNIT(S)
     Route: 042
     Dates: start: 20130220, end: 20130228
  2. CLEXANE T [Interacting]
     Indication: ATRIAL FIBRILLATION
     Dosage: DOSE:1 UNIT(S)
     Route: 058
     Dates: start: 20130221, end: 20130311
  3. CARDIOASPIRIN [Interacting]
     Indication: ISCHAEMIC CARDIOMYOPATHY
     Route: 048
     Dates: start: 20110101, end: 20130223
  4. MORPHINE [Concomitant]
  5. NITRO-DUR [Concomitant]
  6. SERETIDE [Concomitant]
  7. SPIRIVA [Concomitant]
  8. CORDARONE [Concomitant]
  9. PANTORC [Concomitant]
  10. CLENIL [Concomitant]
  11. BRONCOVALEAS [Concomitant]
  12. LANOXIN [Concomitant]
  13. TAZOCIN [Concomitant]
  14. LEVOXACIN [Concomitant]
  15. LASIX [Concomitant]
  16. CATAPRESAN [Concomitant]
  17. XANAX [Concomitant]

REACTIONS (2)
  - Haemoglobin decreased [Recovering/Resolving]
  - Drug interaction [Recovering/Resolving]
